FAERS Safety Report 7337695-9 (Version None)
Quarter: 2011Q1

REPORT INFORMATION
  Report Type: 
  Country: None (occurrence: None)
  Receive Date: 20110308
  Receipt Date: 20110223
  Transmission Date: 20110831
  Serious: Yes (Hospitalization)
  Sender: FDA-Public Use
  Company Number: US-JNJFOC-20110207813

PATIENT
  Age: 38 Year
  Sex: Female
  Weight: 69.5 kg

DRUGS (10)
  1. TYLENOL [Suspect]
  2. TYLENOL [Suspect]
     Indication: PRODUCT USED FOR UNKNOWN INDICATION
  3. DIPHENHYDRAMINE [Suspect]
     Indication: PRODUCT USED FOR UNKNOWN INDICATION
  4. PROPRANOLOL [Suspect]
     Indication: PRODUCT USED FOR UNKNOWN INDICATION
  5. ETHANOL [Suspect]
     Indication: PRODUCT USED FOR UNKNOWN INDICATION
  6. HYDROXYZINE [Suspect]
     Indication: PRODUCT USED FOR UNKNOWN INDICATION
  7. CITALOPRAM HYDROBROMIDE [Concomitant]
  8. ALBUTEROL [Concomitant]
  9. DIPHENHYDRAMINE [Suspect]
  10. VENLAFAXINE [Concomitant]

REACTIONS (5)
  - RESPIRATORY FAILURE [None]
  - INTENTIONAL SELF-INJURY [None]
  - MULTIPLE DRUG OVERDOSE INTENTIONAL [None]
  - HYPOTENSION [None]
  - COMA [None]
